FAERS Safety Report 25024827 (Version 1)
Quarter: 2025Q1

REPORT INFORMATION
  Report Type: Spontaneous
  Country: US (occurrence: US)
  Receive Date: 20250228
  Receipt Date: 20250228
  Transmission Date: 20250409
  Serious: Yes (Hospitalization)
  Sender: TEVA
  Company Number: US-TEVA-VS-3303045

PATIENT
  Age: 45 Year
  Sex: Female

DRUGS (12)
  1. COPAXONE [Suspect]
     Active Substance: GLATIRAMER ACETATE
     Indication: Multiple sclerosis
     Route: 065
  2. OCREVUS [Concomitant]
     Active Substance: OCRELIZUMAB
  3. VITAMINS [Concomitant]
     Active Substance: VITAMINS
  4. MODAFINIL [Concomitant]
     Active Substance: MODAFINIL
  5. PANTOPRAZOLE [Concomitant]
     Active Substance: PANTOPRAZOLE
  6. CYCLOBENZAPRINE [Concomitant]
     Active Substance: CYCLOBENZAPRINE
  7. GABAPENTIN [Concomitant]
     Active Substance: GABAPENTIN
  8. SUMATRIPTAN [Concomitant]
     Active Substance: SUMATRIPTAN
  9. VENLAFAXINE [Concomitant]
     Active Substance: VENLAFAXINE HYDROCHLORIDE
  10. NORETH [Concomitant]
  11. DIVALPROEX SODIUM [Concomitant]
     Active Substance: DIVALPROEX SODIUM
  12. BACTRIM [Concomitant]
     Active Substance: SULFAMETHOXAZOLE\TRIMETHOPRIM

REACTIONS (2)
  - Multiple sclerosis relapse [Unknown]
  - Hand deformity [Unknown]
